FAERS Safety Report 23371421 (Version 3)
Quarter: 2024Q1

REPORT INFORMATION
  Report Type: Spontaneous
  Country: US (occurrence: US)
  Receive Date: 20240105
  Receipt Date: 20240208
  Transmission Date: 20240410
  Serious: No
  Sender: FDA-Public Use
  Company Number: US-BAUSCHBL-2023BNL013785

PATIENT
  Age: 90 Year
  Sex: Female

DRUGS (2)
  1. MIEBO [Suspect]
     Active Substance: PERFLUOROHEXYLOCTANE
     Indication: Dry eye
     Dosage: 1 DROP INTO BOTH EYES FOUR TIMES A DAY EVERY 4 HOURS
     Route: 065
     Dates: start: 20231205
  2. MIEBO [Suspect]
     Active Substance: PERFLUOROHEXYLOCTANE
     Indication: Diplopia

REACTIONS (3)
  - Patient dissatisfaction with treatment [Unknown]
  - Product dose omission issue [Unknown]
  - No adverse event [Unknown]
